FAERS Safety Report 12248306 (Version 2)
Quarter: 2016Q2

REPORT INFORMATION
  Report Type: Spontaneous
  Country: JP (occurrence: JP)
  Receive Date: 20160408
  Receipt Date: 20160414
  Transmission Date: 20160815
  Serious: No
  Sender: FDA-Public Use
  Company Number: JP-009507513-1604JPN000225

PATIENT
  Age: 87 Year
  Sex: Male
  Weight: 73 kg

DRUGS (13)
  1. BELSOMRA [Suspect]
     Active Substance: SUVOREXANT
     Indication: INSOMNIA
     Dosage: 15 MG, QD
     Route: 048
     Dates: start: 20160229, end: 20160229
  2. BETANIS [Concomitant]
     Active Substance: MIRABEGRON
     Indication: BENIGN PROSTATIC HYPERPLASIA
     Dosage: 50 MG, QD
     Route: 048
  3. LIPIDIL [Concomitant]
     Active Substance: FENOFIBRATE
     Dosage: DAILY DOSAGE UNKNOWN
     Route: 048
  4. ZETIA [Concomitant]
     Active Substance: EZETIMIBE
     Dosage: DAILY DOSAGE UNKNOWN
     Route: 048
  5. FURSULTIAMINE HYDROCHLORIDE (+) HYDROXOCOBALAMIN ACETATE (+) PYRIDOXAL [Concomitant]
     Dosage: DAILY DOSE UNKNOWN
  6. AVAPRO [Concomitant]
     Active Substance: IRBESARTAN
     Dosage: DAILY DOSAGE UNKNOWN
     Route: 048
  7. URITOS [Concomitant]
     Active Substance: IMIDAFENACIN
     Dosage: DAILY DOSAGE UNKNOWN
     Route: 048
  8. PLETAAL [Concomitant]
     Active Substance: CILOSTAZOL
     Dosage: DAILY DOSAGE UNKNOWN
     Route: 048
  9. ALLELOCK [Concomitant]
     Active Substance: OLOPATADINE HYDROCHLORIDE
     Dosage: DAILY DOSE UNKNOWN
     Route: 048
  10. CALBLOCK [Concomitant]
     Active Substance: AZELNIDIPINE
     Dosage: DAILY DOSE UNKNOWN
     Route: 048
  11. HARNAL [Concomitant]
     Active Substance: TAMSULOSIN HYDROCHLORIDE
     Dosage: DAILY DOSAGE UNKNOWN
     Route: 048
  12. PRIMPERAN [Concomitant]
     Active Substance: METOCLOPRAMIDE HYDROCHLORIDE
     Dosage: DAILY DOSAGE UNKNOWN
     Route: 065
  13. TRAZENTA [Concomitant]
     Active Substance: LINAGLIPTIN
     Dosage: DAILY DOSAGE UNKNOWN
     Route: 048

REACTIONS (5)
  - Feeling abnormal [Recovered/Resolved]
  - Diarrhoea [Recovered/Resolved]
  - Headache [Recovered/Resolved]
  - Hallucination [Recovered/Resolved]
  - Nightmare [Recovered/Resolved]

NARRATIVE: CASE EVENT DATE: 20160229
